FAERS Safety Report 8960446 (Version 1)
Quarter: 2012Q4

REPORT INFORMATION
  Report Type: Spontaneous
  Country: US (occurrence: None)
  Receive Date: 20121211
  Receipt Date: 20121211
  Transmission Date: 20130627
  Serious: No
  Sender: FDA-Public Use
  Company Number: None

PATIENT

DRUGS (1)
  1. FERAHEME [Suspect]
     Indication: IRON DEFICIENCY ANEMIA
     Route: 042
     Dates: start: 20120409

REACTIONS (4)
  - Infusion related reaction [None]
  - Dyspnoea [None]
  - Flushing [None]
  - Hyperhidrosis [None]
